FAERS Safety Report 25127515 (Version 1)
Quarter: 2025Q1

REPORT INFORMATION
  Report Type: Spontaneous
  Country: US (occurrence: US)
  Receive Date: 20250327
  Receipt Date: 20250327
  Transmission Date: 20250409
  Serious: Yes (Other)
  Sender: AMGEN
  Company Number: US-AMGEN-USASP2025054556

PATIENT
  Age: 42 Year
  Sex: Male

DRUGS (5)
  1. PREDNISONE [Suspect]
     Active Substance: PREDNISONE
     Indication: Uveitis
     Route: 048
  2. METHAMPHETAMINE [Concomitant]
     Active Substance: METHAMPHETAMINE
  3. CANNABIS SATIVA SUBSP. INDICA TOP [Concomitant]
     Active Substance: CANNABIS SATIVA SUBSP. INDICA TOP
  4. PENICILLIN [Concomitant]
     Active Substance: PENICILLIN
     Indication: Neurosyphilis
     Route: 040
  5. ATROPINE [Concomitant]
     Active Substance: ATROPINE
     Indication: Uveitis
     Dosage: UNK UNK, BID
     Route: 065

REACTIONS (4)
  - Glaucoma [Unknown]
  - Uveitis [Unknown]
  - Retinal detachment [Unknown]
  - Proliferative vitreoretinopathy [Unknown]
